FAERS Safety Report 7642983-2 (Version None)
Quarter: 2011Q3

REPORT INFORMATION
  Report Type: 
  Country: None (occurrence: None)
  Receive Date: 20110728
  Receipt Date: 20110719
  Transmission Date: 20111222
  Serious: Yes (Other)
  Sender: FDA-Public Use
  Company Number: TH-B.I. PHARMACEUTICALS,INC./RIDGEFIELD-2011-BP-17912BP

PATIENT
  Sex: Male
  Weight: 60 kg

DRUGS (10)
  1. METFORMIN HCL [Concomitant]
     Indication: DIABETES MELLITUS
     Dosage: 500 MG
     Route: 048
     Dates: start: 20070706
  2. DABIGATRAN [Suspect]
     Indication: CEREBROVASCULAR ACCIDENT PROPHYLAXIS
     Route: 048
     Dates: end: 20110116
  3. SIMVASTATIN [Concomitant]
     Indication: DYSLIPIDAEMIA
     Dosage: 40 MG
     Route: 048
     Dates: start: 20070607
  4. DABIGATRAN [Suspect]
     Indication: ATRIAL FIBRILLATION
  5. POLI-URETIC [Concomitant]
     Indication: ATRIAL FIBRILLATION
     Dosage: 1 ANZ
     Route: 048
     Dates: start: 20030523
  6. RANITIDINE [Concomitant]
     Indication: GASTRITIS PROPHYLAXIS
     Dosage: 300 MG
     Route: 048
     Dates: start: 20030523
  7. GLIPIZIDE [Concomitant]
     Indication: DIABETES MELLITUS
     Dosage: 5 MG
     Route: 048
     Dates: start: 20070607
  8. ENALAPRIL MALEATE [Concomitant]
     Indication: ATRIAL FIBRILLATION
     Dosage: 5 MG
     Route: 048
     Dates: start: 19950221
  9. POLI-URETIC [Concomitant]
     Indication: HYPERTENSION
  10. PROPRANOLOL [Concomitant]
     Indication: ATRIAL FIBRILLATION
     Dosage: 20 MG
     Route: 048
     Dates: start: 19990108

REACTIONS (1)
  - CREATININE RENAL CLEARANCE DECREASED [None]
